FAERS Safety Report 23559461 (Version 10)
Quarter: 2024Q4

REPORT INFORMATION
  Report Type: Report from Study
  Country: IE (occurrence: IE)
  Receive Date: 20240223
  Receipt Date: 20241015
  Transmission Date: 20250114
  Serious: Yes (Hospitalization, Other)
  Sender: BAXTER
  Company Number: IE-BAXTER-2024BAX013169

PATIENT
  Age: 83 Year
  Sex: Male

DRUGS (103)
  1. SYNTHAMIN [Suspect]
     Active Substance: AMINO ACIDS
     Indication: Parenteral nutrition
     Dosage: DOSAGE TEXT: 3000 MLS
     Route: 042
     Dates: start: 20240217, end: 20240218
  2. SYNTHAMIN [Suspect]
     Active Substance: AMINO ACIDS
     Indication: Short-bowel syndrome
     Dosage: DOSAGE TEXT: 3000 MLS
     Route: 042
     Dates: start: 20240218, end: 20240219
  3. SYNTHAMIN [Suspect]
     Active Substance: AMINO ACIDS
     Indication: Palliative care
     Dosage: DOSAGE TEXT: 3000 MLS
     Route: 042
     Dates: start: 20240112
  4. SYNTHAMIN [Suspect]
     Active Substance: AMINO ACIDS
     Indication: Gastrointestinal disorder
     Dosage: DOSAGE TEXT: 3000 MLS
     Route: 042
     Dates: start: 20240409, end: 20240410
  5. SYNTHAMIN [Suspect]
     Active Substance: AMINO ACIDS
     Dosage: DOSAGE TEXT: 3000 MLS
     Route: 042
     Dates: start: 20240411, end: 20240412
  6. SYNTHAMIN [Suspect]
     Active Substance: AMINO ACIDS
     Dosage: DOSAGE TEXT: 3000 MLS
     Route: 042
     Dates: start: 20240417
  7. SYNTHAMIN [Suspect]
     Active Substance: AMINO ACIDS
     Dosage: LOWER VOLUME BAG FOR 1 DAY PER WEEK
     Route: 042
  8. WATER FOR INJECTION [Suspect]
     Active Substance: WATER
     Indication: Parenteral nutrition
     Dosage: (DURATION: 12 HOURS) DOSAGE TEXT: 3000 MLS
     Route: 042
     Dates: start: 20240217, end: 20240218
  9. WATER FOR INJECTION [Suspect]
     Active Substance: WATER
     Indication: Short-bowel syndrome
     Dosage: (DURATION: 2 DAYS) DOSAGE TEXT: 3000 MLS
     Route: 042
     Dates: start: 20240218, end: 20240219
  10. WATER FOR INJECTION [Suspect]
     Active Substance: WATER
     Indication: Palliative care
     Dosage: DOSAGE TEXT: 3000 MLS
     Route: 042
     Dates: start: 20240112
  11. WATER FOR INJECTION [Suspect]
     Active Substance: WATER
     Indication: Gastrointestinal disorder
     Dosage: (DURATION: 2 DAYS) DOSAGE TEXT: 3000 MLS
     Route: 042
     Dates: start: 20240409, end: 20240410
  12. WATER FOR INJECTION [Suspect]
     Active Substance: WATER
     Dosage: DOSAGE TEXT: 3000 MLS
     Route: 042
     Dates: start: 20240411, end: 20240412
  13. WATER FOR INJECTION [Suspect]
     Active Substance: WATER
     Dosage: DOSAGE TEXT: 3000 MLS
     Route: 042
     Dates: start: 20240417
  14. WATER FOR INJECTION [Suspect]
     Active Substance: WATER
     Dosage: LOWER VOLUME BAG FOR 1 DAY PER WEEK
     Route: 042
  15. CERNEVIT [Suspect]
     Active Substance: VITAMINS
     Dosage: UNK
     Route: 065
  16. AMINO ACIDS\DEXTROSE\ELECTROLYTES NOS\SOYBEAN OIL [Suspect]
     Active Substance: AMINO ACIDS\DEXTROSE\ELECTROLYTES NOS\SOYBEAN OIL
     Dosage: 2L N-7 ELEC
     Route: 065
  17. CERNEVIT [Suspect]
     Active Substance: VITAMINS
     Indication: Parenteral nutrition
     Dosage: DOSAGE TEXT:3000 MLS
     Route: 042
     Dates: start: 20240217, end: 20240218
  18. CERNEVIT [Suspect]
     Active Substance: VITAMINS
     Indication: Short-bowel syndrome
     Dosage: DOSAGE TEXT:3000 MLS
     Route: 042
     Dates: start: 20240218, end: 20240219
  19. CERNEVIT [Suspect]
     Active Substance: VITAMINS
     Indication: Palliative care
     Dosage: DOSAGE TEXT:3000 MLS
     Route: 042
     Dates: start: 20240112
  20. CERNEVIT [Suspect]
     Active Substance: VITAMINS
     Indication: Gastrointestinal disorder
     Dosage: DOSAGE TEXT:3000 MLS
     Route: 042
     Dates: start: 20240409, end: 20240410
  21. CERNEVIT [Suspect]
     Active Substance: VITAMINS
     Dosage: DOSAGE TEXT:3000 MLS
     Route: 042
     Dates: start: 20240411, end: 20240412
  22. CERNEVIT [Suspect]
     Active Substance: VITAMINS
     Dosage: DOSAGE TEXT :3000 MLS
     Route: 042
     Dates: start: 20240417
  23. CERNEVIT [Suspect]
     Active Substance: VITAMINS
     Dosage: LOWER VOLUME BAG FOR 1 DAY PER WEEK
     Route: 042
  24. WATER [Suspect]
     Active Substance: WATER
     Indication: Medication dilution
     Dosage: UNK
     Route: 065
  25. SODIUM CHLORIDE [Suspect]
     Active Substance: SODIUM CHLORIDE
     Dosage: UNK
     Route: 065
  26. DEXTROSE [Suspect]
     Active Substance: DEXTROSE MONOHYDRATE
     Indication: Parenteral nutrition
     Dosage: DOSAGE TEXT :3000 MLS
     Route: 042
     Dates: start: 20240217, end: 20240218
  27. DEXTROSE [Suspect]
     Active Substance: DEXTROSE MONOHYDRATE
     Indication: Short-bowel syndrome
     Dosage: DOSAGE TEXT :3000 MLS
     Route: 042
     Dates: start: 20240218, end: 20240219
  28. DEXTROSE [Suspect]
     Active Substance: DEXTROSE MONOHYDRATE
     Indication: Palliative care
     Dosage: DOSAGE TEXT :3000 MLS
     Route: 042
     Dates: start: 20240112
  29. DEXTROSE [Suspect]
     Active Substance: DEXTROSE MONOHYDRATE
     Indication: Gastrointestinal disorder
     Dosage: DOSAGE TEXT :3000 MLS
     Route: 042
     Dates: start: 20240409, end: 20240410
  30. DEXTROSE [Suspect]
     Active Substance: DEXTROSE MONOHYDRATE
     Dosage: DOSAGE TEXT :3000 MLS
     Route: 042
     Dates: start: 20240411, end: 20240412
  31. DEXTROSE [Suspect]
     Active Substance: DEXTROSE MONOHYDRATE
     Dosage: DOSAGE TEXT :3000 MLS
     Route: 042
     Dates: start: 20240417
  32. DEXTROSE [Suspect]
     Active Substance: DEXTROSE MONOHYDRATE
     Dosage: LOWER VOLUME BAG FOR 1 DAY PER WEEK
     Route: 042
  33. IRON\MINERALS\POTASSIUM IOD\SODIUM FLUORIDE\SODIUM MOLYBDATE\SODIUM SE [Suspect]
     Active Substance: IRON\MINERALS\POTASSIUM IOD\SODIUM FLUORIDE\SODIUM MOLYBDATE\SODIUM SELENITE\ZINC
     Indication: Parenteral nutrition
     Dosage: (DOSAGE TEXT:LABORATOIRE AGUETTANT, S.A.S.), 3000 MLS
     Route: 042
     Dates: start: 20240217, end: 20240218
  34. IRON\MINERALS\POTASSIUM IOD\SODIUM FLUORIDE\SODIUM MOLYBDATE\SODIUM SE [Suspect]
     Active Substance: IRON\MINERALS\POTASSIUM IOD\SODIUM FLUORIDE\SODIUM MOLYBDATE\SODIUM SELENITE\ZINC
     Indication: Short-bowel syndrome
     Dosage: (DOSAGE TEXT:LABORATOIRE AGUETTANT, S.A.S.), 3000 MLS
     Route: 042
     Dates: start: 20240218, end: 20240219
  35. IRON\MINERALS\POTASSIUM IOD\SODIUM FLUORIDE\SODIUM MOLYBDATE\SODIUM SE [Suspect]
     Active Substance: IRON\MINERALS\POTASSIUM IOD\SODIUM FLUORIDE\SODIUM MOLYBDATE\SODIUM SELENITE\ZINC
     Indication: Palliative care
     Dosage: (DOSAGE TEXT:LABORATOIRE AGUETTANT, S.A.S.), 3000 MLS
     Route: 042
     Dates: start: 20240112
  36. IRON\MINERALS\POTASSIUM IOD\SODIUM FLUORIDE\SODIUM MOLYBDATE\SODIUM SE [Suspect]
     Active Substance: IRON\MINERALS\POTASSIUM IOD\SODIUM FLUORIDE\SODIUM MOLYBDATE\SODIUM SELENITE\ZINC
     Indication: Gastrointestinal disorder
     Dosage: DOSAGE TEXT: LABORATOIRE AGUETTANT, S.A.S.), 3000 MLS
     Route: 042
     Dates: start: 20240409, end: 20240410
  37. IRON\MINERALS\POTASSIUM IOD\SODIUM FLUORIDE\SODIUM MOLYBDATE\SODIUM SE [Suspect]
     Active Substance: IRON\MINERALS\POTASSIUM IOD\SODIUM FLUORIDE\SODIUM MOLYBDATE\SODIUM SELENITE\ZINC
     Dosage: DOSAGE TEXT: LABORATOIRE AGUETTANT, S.A.S.), 3000 MLS
     Route: 042
     Dates: start: 20240411, end: 20240412
  38. IRON\MINERALS\POTASSIUM IOD\SODIUM FLUORIDE\SODIUM MOLYBDATE\SODIUM SE [Suspect]
     Active Substance: IRON\MINERALS\POTASSIUM IOD\SODIUM FLUORIDE\SODIUM MOLYBDATE\SODIUM SELENITE\ZINC
     Dosage: DOSAGE TEXT: LABORATOIRE AGUETTANT, S.A.S.), 3000 MLS
     Route: 042
     Dates: start: 20240417
  39. IRON\MINERALS\POTASSIUM IOD\SODIUM FLUORIDE\SODIUM MOLYBDATE\SODIUM SE [Suspect]
     Active Substance: IRON\MINERALS\POTASSIUM IOD\SODIUM FLUORIDE\SODIUM MOLYBDATE\SODIUM SELENITE\ZINC
     Dosage: LOWER VOLUME BAG FOR 1 DAY PER WEEK
     Route: 042
  40. IRON\MINERALS\POTASSIUM IOD\SODIUM FLUORIDE\SODIUM MOLYBDATE\SODIUM SE [Suspect]
     Active Substance: IRON\MINERALS\POTASSIUM IOD\SODIUM FLUORIDE\SODIUM MOLYBDATE\SODIUM SELENITE\ZINC
     Dosage: UNK
     Route: 065
  41. SMOFLIPID [Suspect]
     Active Substance: FISH OIL\MEDIUM-CHAIN TRIGLYCERIDES\OLIVE OIL\SOYBEAN OIL
     Indication: Parenteral nutrition
     Dosage: DOSAGE TEXT :3000 MLS
     Route: 042
     Dates: start: 20240217, end: 20240218
  42. SMOFLIPID [Suspect]
     Active Substance: FISH OIL\MEDIUM-CHAIN TRIGLYCERIDES\OLIVE OIL\SOYBEAN OIL
     Indication: Short-bowel syndrome
     Dosage: DOSAGE TEXT :3000 MLS
     Route: 042
     Dates: start: 20240218, end: 20240219
  43. SMOFLIPID [Suspect]
     Active Substance: FISH OIL\MEDIUM-CHAIN TRIGLYCERIDES\OLIVE OIL\SOYBEAN OIL
     Indication: Palliative care
     Dosage: DOSAGE TEXT :3000 MLS
     Route: 042
     Dates: start: 20240112
  44. SMOFLIPID [Suspect]
     Active Substance: FISH OIL\MEDIUM-CHAIN TRIGLYCERIDES\OLIVE OIL\SOYBEAN OIL
     Indication: Gastrointestinal disorder
     Dosage: DOSAGE TEXT :3000 MLS
     Route: 042
     Dates: start: 20240409, end: 20240410
  45. SMOFLIPID [Suspect]
     Active Substance: FISH OIL\MEDIUM-CHAIN TRIGLYCERIDES\OLIVE OIL\SOYBEAN OIL
     Dosage: DOSAGE TEXT :3000 MLS
     Route: 042
     Dates: start: 20240411, end: 20240412
  46. SMOFLIPID [Suspect]
     Active Substance: FISH OIL\MEDIUM-CHAIN TRIGLYCERIDES\OLIVE OIL\SOYBEAN OIL
     Dosage: DOSAGE TEXT :3000 MLS
     Route: 042
     Dates: start: 20240417
  47. SMOFLIPID [Suspect]
     Active Substance: FISH OIL\MEDIUM-CHAIN TRIGLYCERIDES\OLIVE OIL\SOYBEAN OIL
     Dosage: LOWER VOLUME BAG FOR 1 DAY PER WEEK
     Route: 042
  48. ZINC SULFATE [Suspect]
     Active Substance: ZINC SULFATE
     Indication: Parenteral nutrition
     Dosage: DOSAGE TEXT:3000 MLS
     Route: 042
     Dates: start: 20240217, end: 20240218
  49. ZINC SULFATE [Suspect]
     Active Substance: ZINC SULFATE
     Indication: Short-bowel syndrome
     Dosage: DOSAGE TEXT:3000 MLS
     Route: 042
     Dates: start: 20240218, end: 20240219
  50. ZINC SULFATE [Suspect]
     Active Substance: ZINC SULFATE
     Indication: Palliative care
     Dosage: DOSAGE TEXT:3000 MLS
     Route: 042
     Dates: start: 20240112
  51. ZINC SULFATE [Suspect]
     Active Substance: ZINC SULFATE
     Indication: Gastrointestinal disorder
     Dosage: DOSAGE TEXT:3000 MLS
     Route: 042
     Dates: start: 20240409, end: 20240410
  52. ZINC SULFATE [Suspect]
     Active Substance: ZINC SULFATE
     Dosage: DOSAGE TEXT:3000 MLS
     Route: 042
     Dates: start: 20240411, end: 20240412
  53. ZINC SULFATE [Suspect]
     Active Substance: ZINC SULFATE
     Dosage: DOSAGE TEXT:3000 MLS
     Route: 042
     Dates: start: 20240417
  54. ZINC SULFATE [Suspect]
     Active Substance: ZINC SULFATE
     Dosage: LOWER VOLUME BAG FOR 1 DAY PER WEEK
     Route: 042
  55. CALCIUM CHLORIDE [Suspect]
     Active Substance: CALCIUM CHLORIDE
     Indication: Parenteral nutrition
     Dosage: DOSAGE TEXT:3000 MLS
     Route: 042
     Dates: start: 20240217, end: 20240218
  56. CALCIUM CHLORIDE [Suspect]
     Active Substance: CALCIUM CHLORIDE
     Indication: Short-bowel syndrome
     Dosage: DOSAGE TEXT:3000 MLS
     Route: 042
     Dates: start: 20240218, end: 20240219
  57. CALCIUM CHLORIDE [Suspect]
     Active Substance: CALCIUM CHLORIDE
     Indication: Palliative care
     Dosage: DOSAGE TEXT:3000 MLS
     Route: 042
     Dates: start: 20240112
  58. CALCIUM CHLORIDE [Suspect]
     Active Substance: CALCIUM CHLORIDE
     Indication: Gastrointestinal disorder
     Dosage: LOWER VOLUME BAG FOR 1 DAY PER WEEK
     Route: 042
  59. MAGNESIUM SULFATE [Suspect]
     Active Substance: MAGNESIUM SULFATE
     Indication: Parenteral nutrition
     Dosage: DOSAGE TEXT :MAGNESIUM SULPHATE 49.3% BAG, 3000 MLS
     Route: 042
     Dates: start: 20240217, end: 20240218
  60. MAGNESIUM SULFATE [Suspect]
     Active Substance: MAGNESIUM SULFATE
     Indication: Short-bowel syndrome
     Dosage: DOSAGE TEXT :MAGNESIUM SULPHATE 49.3% BAG, 3000 MLS
     Route: 042
     Dates: start: 20240218, end: 20240219
  61. MAGNESIUM SULFATE [Suspect]
     Active Substance: MAGNESIUM SULFATE
     Indication: Palliative care
     Dosage: DOSAGE TEXT :MAGNESIUM SULPHATE 49.3% BAG, 3000 MLS
     Route: 042
     Dates: start: 20240112
  62. MAGNESIUM SULFATE [Suspect]
     Active Substance: MAGNESIUM SULFATE
     Indication: Gastrointestinal disorder
     Dosage: DOSAGE TEXT :3000 MLS
     Route: 042
     Dates: start: 20240409, end: 20240410
  63. MAGNESIUM SULFATE [Suspect]
     Active Substance: MAGNESIUM SULFATE
     Dosage: DOSAGE TEXT :3000 MLS
     Route: 042
     Dates: start: 20240411, end: 20240412
  64. MAGNESIUM SULFATE [Suspect]
     Active Substance: MAGNESIUM SULFATE
     Dosage: DOSAGE TEXT :3000 MLS
     Route: 042
     Dates: start: 20240417
  65. MAGNESIUM SULFATE [Suspect]
     Active Substance: MAGNESIUM SULFATE
     Dosage: LOWER VOLUME BAG FOR 1 DAY PER WEEK
     Route: 042
  66. POTASSIUM CHLORIDE [Suspect]
     Active Substance: POTASSIUM CHLORIDE
     Indication: Parenteral nutrition
     Dosage: DOSAGE TEXT :3000 MLS
     Route: 042
     Dates: start: 20240112
  67. POTASSIUM CHLORIDE [Suspect]
     Active Substance: POTASSIUM CHLORIDE
     Indication: Short-bowel syndrome
     Dosage: DOSAGE TEXT :3000 MLS
     Route: 042
     Dates: start: 20240217, end: 20240218
  68. POTASSIUM CHLORIDE [Suspect]
     Active Substance: POTASSIUM CHLORIDE
     Indication: Palliative care
     Dosage: DOSAGE TEXT :3000 MLS
     Route: 042
     Dates: start: 20240218, end: 20240219
  69. POTASSIUM CHLORIDE [Suspect]
     Active Substance: POTASSIUM CHLORIDE
     Indication: Gastrointestinal disorder
     Dosage: DOSAGE TEXT :3000 MLS
     Route: 042
     Dates: start: 20240409, end: 20240410
  70. POTASSIUM CHLORIDE [Suspect]
     Active Substance: POTASSIUM CHLORIDE
     Dosage: DOSAGE TEXT :3000 MLS
     Route: 042
     Dates: start: 20240411, end: 20240412
  71. POTASSIUM CHLORIDE [Suspect]
     Active Substance: POTASSIUM CHLORIDE
     Dosage: DOSAGE TEXT :3000 MLS
     Route: 042
     Dates: start: 20240417
  72. POTASSIUM CHLORIDE [Suspect]
     Active Substance: POTASSIUM CHLORIDE
     Dosage: LOWER VOLUME BAG FOR 1 DAY PER WEEK
     Route: 042
  73. SODIUM ACETATE [Suspect]
     Active Substance: SODIUM ACETATE
     Indication: Parenteral nutrition
     Dosage: DOSAGE TEXT: 3000 MLS
     Route: 042
     Dates: start: 20240112
  74. SODIUM ACETATE [Suspect]
     Active Substance: SODIUM ACETATE
     Indication: Short-bowel syndrome
     Dosage: (DURATION: 2 DAYS) DOSAGE TEXT: 3000 MLS
     Route: 042
     Dates: start: 20240218, end: 20240219
  75. SODIUM ACETATE [Suspect]
     Active Substance: SODIUM ACETATE
     Indication: Palliative care
     Dosage: (DURATION: 12 HOURS) DOSAGE TEXT: 3000 MLS
     Route: 042
     Dates: start: 20240217, end: 20240218
  76. SODIUM ACETATE [Suspect]
     Active Substance: SODIUM ACETATE
     Indication: Gastrointestinal disorder
     Dosage: (DURATION: 2 DAYS) DOSAGE TEXT: 3000 MLS
     Route: 042
     Dates: start: 20240409, end: 20240410
  77. SODIUM ACETATE [Suspect]
     Active Substance: SODIUM ACETATE
     Dosage: (DURATION: 2 DAYS) DOSAGE TEXT: 3000 MLS
     Route: 042
     Dates: start: 20240411, end: 20240412
  78. SODIUM ACETATE [Suspect]
     Active Substance: SODIUM ACETATE
     Dosage: DOSAGE TEXT: 3000 MLS
     Route: 042
     Dates: start: 20240417
  79. SODIUM ACETATE [Suspect]
     Active Substance: SODIUM ACETATE
     Dosage: LOWER VOLUME BAG FOR 1 DAY PER WEEK
     Route: 042
  80. SODIUM GLYCEROPHOSPHATE [Suspect]
     Active Substance: SODIUM GLYCEROPHOSPHATE
     Indication: Parenteral nutrition
     Dosage: DOSAGE TEXT:3000 MLS
     Route: 042
     Dates: start: 20240217, end: 20240218
  81. SODIUM GLYCEROPHOSPHATE [Suspect]
     Active Substance: SODIUM GLYCEROPHOSPHATE
     Indication: Short-bowel syndrome
     Dosage: DOSAGE TEXT:3000 MLS
     Route: 042
     Dates: start: 20240218, end: 20240219
  82. SODIUM GLYCEROPHOSPHATE [Suspect]
     Active Substance: SODIUM GLYCEROPHOSPHATE
     Indication: Palliative care
     Dosage: DOSAGE TEXT:3000 MLS
     Route: 042
     Dates: start: 20240112
  83. SODIUM GLYCEROPHOSPHATE [Suspect]
     Active Substance: SODIUM GLYCEROPHOSPHATE
     Indication: Gastrointestinal disorder
     Dosage: DOSAGE TEXT:3000 MLS
     Route: 042
     Dates: start: 20240409, end: 20240410
  84. SODIUM GLYCEROPHOSPHATE [Suspect]
     Active Substance: SODIUM GLYCEROPHOSPHATE
     Dosage: DOSAGE TEXT:3000 MLS
     Route: 042
     Dates: start: 20240411, end: 20240412
  85. SODIUM GLYCEROPHOSPHATE [Suspect]
     Active Substance: SODIUM GLYCEROPHOSPHATE
     Dosage: DOSAGE TEXT:3000 MLS
     Route: 042
     Dates: start: 20240417
  86. SODIUM GLYCEROPHOSPHATE [Suspect]
     Active Substance: SODIUM GLYCEROPHOSPHATE
     Dosage: LOWER VOLUME BAG FOR 1 DAY PER WEEK
     Route: 042
  87. WATER FOR INJECTION [Suspect]
     Active Substance: WATER
     Indication: Parenteral nutrition
     Dosage: DOSAGE TEXT:WATER FOR TPN FORMULATION, 3000 MLS
     Route: 042
     Dates: start: 20240217, end: 20240218
  88. WATER FOR INJECTION [Suspect]
     Active Substance: WATER
     Indication: Short-bowel syndrome
     Dosage: DOSAGE TEXT:WATER FOR TPN FORMULATION, 3000 MLS
     Route: 042
     Dates: start: 20240218, end: 20240219
  89. WATER FOR INJECTION [Suspect]
     Active Substance: WATER
     Indication: Palliative care
     Dosage: DOSAGE TEXT:WATER FOR TPN FORMULATION, 3000 MLS
     Route: 042
     Dates: start: 20240112
  90. WATER FOR INJECTION [Suspect]
     Active Substance: WATER
     Indication: Gastrointestinal disorder
     Dosage: DOSAGE TEXT:WATER FOR TPN FORMULATION, 3000 MLS
     Route: 042
     Dates: start: 20240409, end: 20240410
  91. WATER FOR INJECTION [Suspect]
     Active Substance: WATER
     Dosage: DOSAGE TEXT:WATER FOR TPN FORMULATION, 3000 MLS
     Route: 042
     Dates: start: 20240411, end: 20240412
  92. WATER FOR INJECTION [Suspect]
     Active Substance: WATER
     Dosage: DOSAGE TEXT:WATER FOR TPN FORMULATION, 3000 MLS
     Route: 042
     Dates: start: 20240417
  93. WATER FOR INJECTION [Suspect]
     Active Substance: WATER
     Dosage: LOWER VOLUME BAG FOR 1 DAY PER WEEK
     Route: 042
  94. CALCIUM CHLORIDE [Suspect]
     Active Substance: CALCIUM CHLORIDE
     Indication: Parenteral nutrition
     Dosage: DOSAGE TEXT:3000 MLS
     Route: 042
     Dates: start: 20240409, end: 20240410
  95. CALCIUM CHLORIDE [Suspect]
     Active Substance: CALCIUM CHLORIDE
     Indication: Short-bowel syndrome
     Dosage: DOSAGE TEXT:3000 MLS
     Route: 042
     Dates: start: 20240411, end: 20240412
  96. CALCIUM CHLORIDE [Suspect]
     Active Substance: CALCIUM CHLORIDE
     Indication: Palliative care
     Dosage: DOSAGE TEXT:3000 MLS
     Route: 042
     Dates: start: 20240417
  97. CALCIUM CHLORIDE [Suspect]
     Active Substance: CALCIUM CHLORIDE
     Dosage: LOWER VOLUME BAG FOR 1 DAY PER WEEK
     Route: 042
  98. SODIUM CHLORIDE [Suspect]
     Active Substance: SODIUM CHLORIDE
     Indication: Parenteral nutrition
     Dosage: DOSAGE TEXT:3000 MLS
     Route: 042
     Dates: start: 20240409, end: 20240410
  99. SODIUM CHLORIDE [Suspect]
     Active Substance: SODIUM CHLORIDE
     Indication: Short-bowel syndrome
     Dosage: DOSAGE TEXT:3000 MLS
     Route: 042
     Dates: start: 20240411, end: 20240412
  100. SODIUM CHLORIDE [Suspect]
     Active Substance: SODIUM CHLORIDE
     Indication: Palliative care
     Dosage: DOSAGE TEXT:3000 MLS
     Route: 042
     Dates: start: 20240417
  101. SODIUM CHLORIDE [Suspect]
     Active Substance: SODIUM CHLORIDE
     Dosage: LOWER VOLUME BAG FOR 1 DAY PER WEEK
     Route: 042
  102. ASCORBIC ACID [Suspect]
     Active Substance: ASCORBIC ACID
     Dosage: 100 MG/ML
     Route: 065
  103. UNSPECIFIED INGREDIENT [Suspect]
     Active Substance: UNSPECIFIED INGREDIENT
     Dosage: UNK
     Route: 065

REACTIONS (20)
  - Hallucination [Unknown]
  - Stoma site discharge [Recovering/Resolving]
  - Body temperature decreased [Recovering/Resolving]
  - Infection [Unknown]
  - Haemoglobin abnormal [Recovering/Resolving]
  - Malaise [Recovering/Resolving]
  - Feeling cold [Unknown]
  - General physical health deterioration [Not Recovered/Not Resolved]
  - Drug intolerance [Not Recovered/Not Resolved]
  - Malaise [Not Recovered/Not Resolved]
  - Lethargy [Not Recovered/Not Resolved]
  - Fatigue [Not Recovered/Not Resolved]
  - Dyspnoea [Not Recovered/Not Resolved]
  - Blood pressure abnormal [Unknown]
  - Body temperature abnormal [Unknown]
  - Tenderness [Unknown]
  - Erythema [Unknown]
  - Feeling hot [Unknown]
  - Pustule [Unknown]
  - Scar inflammation [Unknown]

NARRATIVE: CASE EVENT DATE: 20240218
